FAERS Safety Report 9416500 (Version 2)
Quarter: 2014Q1

REPORT INFORMATION
  Report Type: Spontaneous
  Country: US (occurrence: US)
  Receive Date: 20130724
  Receipt Date: 20140106
  Transmission Date: 20141002
  Serious: Yes (Death, Other)
  Sender: FDA-Public Use
  Company Number: PHEH2004US014163

PATIENT
  Age: 59 Year
  Sex: Male
  Weight: 173 kg

DRUGS (43)
  1. ZOMETA [Suspect]
     Indication: METASTASES TO BONE
     Dosage: 4 MG, QMO
     Route: 042
     Dates: start: 20020906, end: 200405
  2. ZOMETA [Suspect]
  3. ALLOPURINOL [Concomitant]
     Indication: GOUT
  4. MULTIVITAMINS [Concomitant]
  5. AMBIEN [Concomitant]
  6. AMOXICILLIN [Concomitant]
     Indication: WOUND
     Dosage: 500 MG, TID
     Dates: start: 20040224
  7. MYDRIACYL [Concomitant]
  8. NEO-SYNEPHRINE OPHTHALMICS [Concomitant]
  9. ZOVIRAX [Concomitant]
  10. OXYCODONE [Concomitant]
  11. KETOROLAC [Concomitant]
  12. ACETAMINOPHEN [Concomitant]
  13. DIPHENHYDRAMINE [Concomitant]
  14. NIZATIDINE [Concomitant]
  15. DOCUSATE [Concomitant]
  16. BISACODYL [Concomitant]
  17. TORADOL [Concomitant]
  18. MAGNESIUM SULFATE [Concomitant]
  19. MAALOX [Concomitant]
  20. AMLODIPINE BESYLATE [Concomitant]
  21. LISINOPRIL [Concomitant]
  22. SUTENT [Concomitant]
  23. NEURONTIN [Concomitant]
  24. ULTRACET [Concomitant]
  25. LEXAPRO [Concomitant]
  26. VYTORIN [Concomitant]
  27. CEPHALEXIN [Concomitant]
  28. AVASTIN [Concomitant]
  29. CENTRUM SILVER [Concomitant]
  30. ADVIL [Concomitant]
  31. OMEPRAZOLE [Concomitant]
  32. IMITREX [Concomitant]
  33. PENICILLIN [Concomitant]
  34. FLAGYL [Concomitant]
  35. INDOMETACIN [Concomitant]
  36. METOPROLOL [Concomitant]
  37. PAROXETINE [Concomitant]
  38. METOCLOPRAMIDE [Concomitant]
  39. RELISTOR [Concomitant]
  40. CLONAZEPAM [Concomitant]
  41. LASIX [Concomitant]
  42. DARVOCET-N [Concomitant]
  43. HEPARIN [Concomitant]

REACTIONS (132)
  - Neoplasm progression [Fatal]
  - Metastases to bone [Fatal]
  - Metastases to central nervous system [Fatal]
  - Metastases to lymph nodes [Fatal]
  - Malignant neoplasm progression [Fatal]
  - Metastatic renal cell carcinoma [Fatal]
  - Osteonecrosis of jaw [Not Recovered/Not Resolved]
  - Osteomyelitis [Unknown]
  - Mouth ulceration [Recovering/Resolving]
  - Wound secretion [Recovering/Resolving]
  - Impaired healing [Recovering/Resolving]
  - Bone disorder [Recovering/Resolving]
  - Wound [Not Recovered/Not Resolved]
  - Deformity [Unknown]
  - Infection [Unknown]
  - Hypophagia [Unknown]
  - Emotional distress [Unknown]
  - Anxiety [Unknown]
  - Pain [Unknown]
  - Decreased interest [Unknown]
  - General physical health deterioration [Unknown]
  - Sexual dysfunction [Unknown]
  - Gingival disorder [Unknown]
  - Tooth fracture [Unknown]
  - Swelling [Unknown]
  - Iritis [Not Recovered/Not Resolved]
  - Eye irritation [Unknown]
  - Ocular hyperaemia [Not Recovered/Not Resolved]
  - Vision blurred [Unknown]
  - Eye pain [Recovered/Resolved]
  - Coronary artery disease [Unknown]
  - Myopia [Unknown]
  - Presbyopia [Unknown]
  - Asthenopia [Unknown]
  - Lacrimation increased [Unknown]
  - Foot fracture [Recovering/Resolving]
  - Weight decreased [Unknown]
  - Gastrooesophageal reflux disease [Unknown]
  - Anaemia [Unknown]
  - Arthritis [Unknown]
  - Arthralgia [Unknown]
  - Epistaxis [Unknown]
  - Spinal osteoarthritis [Unknown]
  - Ear infection [Unknown]
  - Hepatic steatosis [Unknown]
  - Intervertebral disc protrusion [Unknown]
  - Haemorrhoids [Unknown]
  - Migraine [Unknown]
  - Neuralgia [Unknown]
  - Paraesthesia [Unknown]
  - Granulomatous liver disease [Unknown]
  - Splenic granuloma [Unknown]
  - Urinary tract infection [Unknown]
  - Gastroenteritis [Unknown]
  - Dermal cyst [Unknown]
  - Gastroenteritis radiation [Unknown]
  - Rectal haemorrhage [Unknown]
  - Diverticulum [Unknown]
  - Benign prostatic hyperplasia [Unknown]
  - Peritoneal adhesions [Unknown]
  - Nephrolithiasis [Unknown]
  - Seborrhoeic dermatitis [Unknown]
  - Melanocytic naevus [Unknown]
  - Tympanic membrane perforation [Unknown]
  - Left ventricular hypertrophy [Unknown]
  - Sinus bradycardia [Unknown]
  - Cholecystitis chronic [Unknown]
  - Hypothyroidism [Unknown]
  - Cardiac disorder [Unknown]
  - Stomatitis [Not Recovered/Not Resolved]
  - Memory impairment [Unknown]
  - Cerebral small vessel ischaemic disease [Unknown]
  - Dizziness [Unknown]
  - Asthenia [Unknown]
  - Pulmonary mass [Unknown]
  - Lymphadenopathy mediastinal [Unknown]
  - Dysphonia [Unknown]
  - Aortic aneurysm [Unknown]
  - Deafness [Unknown]
  - Hyperlipidaemia [Unknown]
  - Colon cancer [Unknown]
  - Ingrowing nail [Recovering/Resolving]
  - Proteinuria [Unknown]
  - Periorbital oedema [Unknown]
  - Type 2 diabetes mellitus [Unknown]
  - Confusional state [Unknown]
  - Bone pain [Unknown]
  - Gastric disorder [Unknown]
  - Pleural effusion [Unknown]
  - Inguinal hernia [Unknown]
  - Dyskinesia [Unknown]
  - Constipation [Not Recovered/Not Resolved]
  - Gastrointestinal motility disorder [Unknown]
  - Abdominal distension [Unknown]
  - Basal cell carcinoma [Unknown]
  - Seborrhoeic keratosis [Unknown]
  - Nasal turbinate hypertrophy [Unknown]
  - Nasal septum deviation [Unknown]
  - Nasal obstruction [Unknown]
  - Aphthous stomatitis [Unknown]
  - Bacterial disease carrier [Unknown]
  - Osteolysis [Unknown]
  - Effusion [Unknown]
  - Oral pain [Unknown]
  - Oral disorder [Unknown]
  - Osteosclerosis [Unknown]
  - Mass [Unknown]
  - Convulsion [Unknown]
  - Aortic arteriosclerosis [Unknown]
  - Chest pain [Unknown]
  - Oedema [Unknown]
  - Oedema peripheral [Unknown]
  - Osteoarthritis [Unknown]
  - Bone lesion [Unknown]
  - Brunner^s gland hyperplasia [Unknown]
  - Metaplasia [Unknown]
  - Hepatic lesion [Unknown]
  - Musculoskeletal pain [Unknown]
  - Pruritus [Unknown]
  - Skin irritation [Unknown]
  - Decreased appetite [Unknown]
  - Glossitis [Unknown]
  - Pain of skin [Unknown]
  - Hyperhidrosis [Unknown]
  - Myalgia [Unknown]
  - Nausea [Unknown]
  - Vomiting [Unknown]
  - Groin pain [Unknown]
  - Sleep apnoea syndrome [Unknown]
  - Back pain [Unknown]
  - Glossodynia [Unknown]
  - Ear pain [Unknown]
